FAERS Safety Report 6968762-7 (Version None)
Quarter: 2010Q3

REPORT INFORMATION
  Report Type: 
  Country: None (occurrence: None)
  Receive Date: 20100907
  Receipt Date: 20100901
  Transmission Date: 20110219
  Serious: Yes (Death, Hospitalization, Other)
  Sender: FDA-Public Use
  Company Number: TW-ASTRAZENECA-2010SE41013

PATIENT
  Age: 19367 Day
  Sex: Male

DRUGS (9)
  1. IRESSA [Suspect]
     Indication: NON-SMALL CELL LUNG CANCER
     Route: 048
     Dates: start: 20091002, end: 20100715
  2. IRESSA [Suspect]
     Route: 048
     Dates: start: 20100716
  3. COLISO [Concomitant]
     Route: 048
  4. LORAZEPAM [Concomitant]
     Route: 048
  5. CODEINE PHOSPHATE [Concomitant]
     Route: 048
  6. TOPAAL [Concomitant]
     Dosage: ONE TABLET THREE TIMES A DAY
     Route: 048
  7. LEVOCETIRIZINE DIHYDROCHLORIDE [Concomitant]
     Route: 048
  8. PETHIDINE [Concomitant]
     Route: 048
  9. MIDAZOLAM HCL [Concomitant]

REACTIONS (1)
  - PNEUMONIA [None]
